FAERS Safety Report 14582666 (Version 2)
Quarter: 2018Q1

REPORT INFORMATION
  Report Type: Report from Study
  Country: None (occurrence: US)
  Receive Date: 20180228
  Receipt Date: 20180309
  Transmission Date: 20180509
  Serious: Yes (Hospitalization, Other)
  Sender: FDA-Public Use
  Company Number: US-ABBVIE-18K-163-2258351-00

PATIENT
  Age: 67 Year
  Sex: Female
  Weight: 89.89 kg

DRUGS (20)
  1. HUMIRA [Suspect]
     Active Substance: ADALIMUMAB
     Indication: RHEUMATOID ARTHRITIS
     Route: 058
     Dates: start: 201610
  2. DEXILANT [Suspect]
     Active Substance: DEXLANSOPRAZOLE
     Indication: OESOPHAGITIS
     Route: 065
     Dates: start: 201709, end: 201801
  3. RAMIPRIL. [Concomitant]
     Active Substance: RAMIPRIL
     Indication: HYPERTENSION
  4. FLUOXETINE [Concomitant]
     Active Substance: FLUOXETINE HYDROCHLORIDE
     Indication: SEASONAL AFFECTIVE DISORDER
  5. CHLORTHALIDONE. [Concomitant]
     Active Substance: CHLORTHALIDONE
     Indication: DIURETIC THERAPY
  6. ZYRTEC [Concomitant]
     Active Substance: CETIRIZINE HYDROCHLORIDE
     Indication: HYPERSENSITIVITY
  7. VITAMIN C [Concomitant]
     Active Substance: ASCORBIC ACID
     Indication: VITAMIN SUPPLEMENTATION
  8. BENADRYL [Concomitant]
     Active Substance: DIPHENHYDRAMINE HYDROCHLORIDE
     Indication: HYPERSENSITIVITY
  9. CARVEDILOL. [Concomitant]
     Active Substance: CARVEDILOL
     Indication: HYPERTENSION
  10. CALCIUM [Concomitant]
     Active Substance: CALCIUM
     Indication: MINERAL SUPPLEMENTATION
  11. RANITIDINE. [Concomitant]
     Active Substance: RANITIDINE
     Indication: OESOPHAGITIS
  12. NIFEDIPINE. [Concomitant]
     Active Substance: NIFEDIPINE
     Indication: HYPERTENSION
  13. NOVOLOG PUMP [Concomitant]
     Indication: TYPE 2 DIABETES MELLITUS
  14. EPIPEN [Concomitant]
     Active Substance: EPINEPHRINE
     Indication: ARTHROPOD STING
  15. LEFLUNOMIDE. [Concomitant]
     Active Substance: LEFLUNOMIDE
     Indication: INFLAMMATION
  16. VITAMIN B12 [Concomitant]
     Active Substance: CYANOCOBALAMIN
     Indication: PERNICIOUS ANAEMIA
  17. LEVOTHYROXINE. [Concomitant]
     Active Substance: LEVOTHYROXINE
     Indication: HYPOTHYROIDISM
  18. WELCHOL [Concomitant]
     Active Substance: COLESEVELAM HYDROCHLORIDE
     Indication: BLOOD CHOLESTEROL INCREASED
  19. FOLIC ACID. [Concomitant]
     Active Substance: FOLIC ACID
     Indication: VITAMIN SUPPLEMENTATION
  20. TYLENOL ARTHRITIS PAIN [Concomitant]
     Active Substance: ACETAMINOPHEN
     Indication: PAIN

REACTIONS (12)
  - Tongue biting [Recovered/Resolved]
  - Gastrointestinal polyp [Recovered/Resolved]
  - Post procedural complication [Recovering/Resolving]
  - Swollen tongue [Recovered/Resolved]
  - Glossodynia [Recovered/Resolved]
  - Oesophagitis [Recovering/Resolving]
  - Anaphylactic reaction [Recovered/Resolved]
  - Cough [Recovering/Resolving]
  - Haemoglobin decreased [Recovered/Resolved]
  - Headache [Recovering/Resolving]
  - Drug hypersensitivity [Unknown]
  - Upper gastrointestinal haemorrhage [Recovered/Resolved]

NARRATIVE: CASE EVENT DATE: 201611
